FAERS Safety Report 8215712-1 (Version None)
Quarter: 2012Q1

REPORT INFORMATION
  Report Type: 
  Country: None (occurrence: None)
  Receive Date: 20120316
  Receipt Date: 20120307
  Transmission Date: 20120608
  Serious: Yes (Hospitalization, Other)
  Sender: FDA-Public Use
  Company Number: GB-BRISTOL-MYERS SQUIBB COMPANY-16442907

PATIENT
  Age: 52 Year
  Sex: Female

DRUGS (4)
  1. CALCIUM SUPPLEMENT [Concomitant]
  2. ACETAMINOPHEN [Concomitant]
  3. STEROIDS [Suspect]
  4. AMIKIN [Suspect]
     Dosage: 600MG FOR 2 WKS
     Dates: start: 20111201

REACTIONS (1)
  - MYCOBACTERIUM AVIUM COMPLEX INFECTION [None]
